FAERS Safety Report 5145120-1 (Version None)
Quarter: 2006Q4

REPORT INFORMATION
  Report Type: 
  Country: None (occurrence: None)
  Receive Date: 20061107
  Receipt Date: 20061027
  Transmission Date: 20070319
  Serious: Yes (Other)
  Sender: FDA-Public Use
  Company Number: ES-JNJFOC-20061100427

PATIENT
  Age: 27 Year
  Sex: Male

DRUGS (4)
  1. RISPERDAL [Suspect]
     Indication: SCHIZOPHRENIA, PARANOID TYPE
     Route: 048
  2. HALOPERIDOL [Concomitant]
     Indication: SCHIZOPHRENIA, PARANOID TYPE
  3. AKINETON [Concomitant]
     Indication: SCHIZOPHRENIA, PARANOID TYPE
  4. BENZODIAZEPINES [Concomitant]
     Indication: SCHIZOPHRENIA, PARANOID TYPE

REACTIONS (2)
  - PARKINSONISM [None]
  - PSYCHOMOTOR RETARDATION [None]
